FAERS Safety Report 5580022-8 (Version None)
Quarter: 2007Q4

REPORT INFORMATION
  Report Type: 
  Country: None (occurrence: None)
  Receive Date: 20071228
  Receipt Date: 20071220
  Transmission Date: 20080405
  Serious: Yes (Death)
  Sender: FDA-Public Use
  Company Number: 083-C5013-07121101

PATIENT
  Age: 66 Year
  Sex: Male
  Weight: 99 kg

DRUGS (2)
  1. CC-5013 (LENALIDOMIDE) (CAPSULES) [Suspect]
     Indication: MULTIPLE MYELOMA
     Dosage: 25 MG, DAILY, ORAL
     Route: 048
     Dates: start: 20071210, end: 20071212
  2. DARBEPOETIN ALFA (DARBEPOETIN ALFA) [Concomitant]

REACTIONS (3)
  - CARDIAC FAILURE [None]
  - HYPOTENSION [None]
  - SHOCK [None]
